FAERS Safety Report 22525893 (Version 1)
Quarter: 2023Q2

REPORT INFORMATION
  Report Type: Spontaneous
  Country: CA (occurrence: CA)
  Receive Date: 20230606
  Receipt Date: 20230606
  Transmission Date: 20230721
  Serious: Yes (Other)
  Sender: FDA-Public Use
  Company Number: CA-PFIZER INC-202300209047

PATIENT
  Age: 58 Year
  Sex: Female
  Weight: 61 kg

DRUGS (7)
  1. ABRILADA [Suspect]
     Active Substance: ADALIMUMAB-AFZB
     Indication: Psoriatic arthropathy
     Dosage: 40 MG
     Route: 058
  2. ABRILADA [Suspect]
     Active Substance: ADALIMUMAB-AFZB
     Dosage: 40 MG
     Route: 058
  3. ASPIRIN [Suspect]
     Active Substance: ASPIRIN
     Route: 065
  4. CELECOXIB [Concomitant]
     Active Substance: CELECOXIB
     Indication: Psoriatic arthropathy
  5. HUMIRA [Concomitant]
     Active Substance: ADALIMUMAB
  6. PANTOPRAZOLE SODIUM [Concomitant]
     Active Substance: PANTOPRAZOLE SODIUM
     Indication: Psoriatic arthropathy
     Dosage: UNK
  7. PREDNISONE [Concomitant]
     Active Substance: PREDNISONE

REACTIONS (3)
  - Abdominal discomfort [Unknown]
  - Diarrhoea [Unknown]
  - Off label use [Unknown]
